FAERS Safety Report 6280308-8 (Version None)
Quarter: 2009Q3

REPORT INFORMATION
  Report Type: 
  Country: None (occurrence: None)
  Receive Date: 20090724
  Receipt Date: 20080513
  Transmission Date: 20100115
  Serious: Yes (Other)
  Sender: FDA-Public Use
  Company Number: US-ASTRAZENECA-2007UW17072

PATIENT
  Age: 538 Month
  Sex: Male

DRUGS (31)
  1. SEROQUEL [Suspect]
     Indication: DEPRESSION
     Route: 048
     Dates: start: 19980801, end: 20050401
  2. SEROQUEL [Suspect]
     Indication: BIPOLAR DISORDER
     Route: 048
     Dates: start: 19980801, end: 20050401
  3. SEROQUEL [Suspect]
     Indication: MANIA
     Route: 048
     Dates: start: 19980801, end: 20050401
  4. SEROQUEL [Suspect]
     Indication: PSYCHOTIC DISORDER
     Route: 048
     Dates: start: 19980801, end: 20050401
  5. SEROQUEL [Suspect]
     Dosage: 100-200 MG
     Route: 048
     Dates: start: 20020416
  6. SEROQUEL [Suspect]
     Dosage: 100-200 MG
     Route: 048
     Dates: start: 20020416
  7. SEROQUEL [Suspect]
     Dosage: 100-200 MG
     Route: 048
     Dates: start: 20020416
  8. SEROQUEL [Suspect]
     Dosage: 100-200 MG
     Route: 048
     Dates: start: 20020416
  9. RISPERDAL [Concomitant]
     Indication: DEPRESSION
     Dosage: 2-4 MG
     Dates: start: 19970806
  10. RISPERDAL [Concomitant]
     Indication: BIPOLAR DISORDER
     Dosage: 2-4 MG
     Dates: start: 19970806
  11. RISPERDAL [Concomitant]
     Indication: MANIA
     Dosage: 2-4 MG
     Dates: start: 19970806
  12. RISPERDAL [Concomitant]
     Dates: start: 19980801, end: 20020401
  13. RISPERDAL [Concomitant]
     Dates: start: 19980801, end: 20020401
  14. RISPERDAL [Concomitant]
     Dates: start: 19980801, end: 20020401
  15. DEPAKOTE [Concomitant]
     Indication: PSYCHOTIC DISORDER
     Dosage: 500-1500 MG
     Dates: start: 19970921, end: 20050210
  16. WELLBUTRIN SR [Concomitant]
     Dates: start: 19970912
  17. EFFEXOR XR [Concomitant]
     Indication: PSYCHOTIC DISORDER
     Dates: start: 20020416, end: 20050422
  18. LEVOXYL [Concomitant]
     Indication: HYPOTHYROIDISM
     Dosage: 50-75 MCG
     Dates: start: 20011017
  19. NABUMETONE [Concomitant]
     Dates: start: 20011009
  20. BIAXIN XL [Concomitant]
     Dates: start: 20020628
  21. ALBUTEROL [Concomitant]
     Dates: start: 20020807
  22. BENZONATATE [Concomitant]
     Dates: start: 20020815
  23. AUGMENTIN [Concomitant]
     Dosage: 875-125 MG
     Dates: start: 19970510
  24. URSO 250 [Concomitant]
     Dosage: 250-750 MG
     Dates: start: 20021211
  25. HYDROCO/APAPS [Concomitant]
     Dosage: 5-500 MG
     Dates: start: 20030605
  26. GLYB/METFOR [Concomitant]
     Dosage: 1.25/25-2.5/50
     Dates: start: 20041214
  27. NEURONTIN [Concomitant]
     Indication: DIABETIC NEUROPATHY
     Dosage: 300-900 MG
     Dates: start: 20050210
  28. CEFACLOR [Concomitant]
     Dates: start: 20050713
  29. VIOXX [Concomitant]
     Dates: start: 20010602
  30. CARBAMAZEPINE [Concomitant]
     Dates: start: 20011009
  31. FUROSEMIDE [Concomitant]
     Dates: start: 20010412

REACTIONS (4)
  - DIABETES MELLITUS [None]
  - DIABETIC NEUROPATHY [None]
  - NEUROPATHY PERIPHERAL [None]
  - TYPE 2 DIABETES MELLITUS [None]
